FAERS Safety Report 19502870 (Version 1)
Quarter: 2021Q3

REPORT INFORMATION
  Report Type: Spontaneous
  Country: FR (occurrence: FR)
  Receive Date: 20210707
  Receipt Date: 20210707
  Transmission Date: 20211014
  Serious: Yes (Death, Other)
  Sender: FDA-Public Use
  Company Number: FR-PURDUE-USA-2021-0273280

PATIENT
  Sex: Female

DRUGS (3)
  1. NON?PMN BUPRENORPHINE [Suspect]
     Active Substance: BUPRENORPHINE
     Indication: DRUG DEPENDENCE
     Dosage: UNK
     Route: 064
  2. COCAINE [Suspect]
     Active Substance: COCAINE
     Indication: PRODUCT USED FOR UNKNOWN INDICATION
     Dosage: UNK
     Route: 064
  3. NICOTINE. [Concomitant]
     Active Substance: NICOTINE

REACTIONS (4)
  - Placental infarction [Fatal]
  - Foetal exposure during pregnancy [Unknown]
  - Foetal death [Fatal]
  - Placental disorder [Fatal]
